FAERS Safety Report 17211178 (Version 1)
Quarter: 2019Q4

REPORT INFORMATION
  Report Type: Spontaneous
  Country: US (occurrence: US)
  Receive Date: 20191228
  Receipt Date: 20191228
  Transmission Date: 20200122
  Serious: Yes (Death, Life-Threatening, Hospitalization, Other)
  Sender: FDA-Public Use
  Company Number: US-SCIEGEN PHARMACEUTICALS INC-2019SCILIT00391

PATIENT
  Age: 57 Year
  Sex: Male

DRUGS (2)
  1. VASOPRESSORS [Interacting]
     Active Substance: UNSPECIFIED INGREDIENT
  2. METAXALONE. [Suspect]
     Active Substance: METAXALONE

REACTIONS (7)
  - Metabolic acidosis [Unknown]
  - Hypotension [Unknown]
  - Electrocardiogram QT prolonged [Unknown]
  - Toxicity to various agents [Fatal]
  - Respiratory depression [Unknown]
  - Depressed level of consciousness [Unknown]
  - Coma [Unknown]
